FAERS Safety Report 12235452 (Version 2)
Quarter: 2016Q3

REPORT INFORMATION
  Report Type: Spontaneous
  Country: FR (occurrence: FR)
  Receive Date: 20160404
  Receipt Date: 20160705
  Transmission Date: 20161109
  Serious: Yes (Hospitalization, Other)
  Sender: FDA-Public Use
  Company Number: FR-INDIVIOR LIMITED-INDV-089348-2016

PATIENT
  Age: 49 Year
  Sex: Male

DRUGS (14)
  1. ESOMEPRAZOLE [Concomitant]
     Active Substance: ESOMEPRAZOLE
     Indication: PRODUCT USED FOR UNKNOWN INDICATION
     Dosage: 20MG, DAILY
     Route: 065
  2. PRINCI B1 + B6 [Concomitant]
     Indication: PRODUCT USED FOR UNKNOWN INDICATION
     Dosage: 2 DOSAGE FORM, 3 TIMES DAILY
     Route: 065
  3. GLUCOSE [Concomitant]
     Active Substance: DEXTROSE
     Indication: PRODUCT USED FOR UNKNOWN INDICATION
     Dosage: 500 MG, DAILY
     Route: 065
  4. AMOXICILLIN. [Concomitant]
     Active Substance: AMOXICILLIN
     Dosage: 2GM, 3 TIMES DAILY
  5. DECAN                              /00016001/ [Concomitant]
     Indication: PRODUCT USED FOR UNKNOWN INDICATION
     Dosage: 1 DOSAGE FORM DAILY
     Route: 065
  6. NICOPATCH [Concomitant]
     Active Substance: NICOTINE
     Indication: PRODUCT USED FOR UNKNOWN INDICATION
     Dosage: 25MG (1 DOSAGE FORM) DAILY
     Route: 065
  7. HEPARIN [Concomitant]
     Active Substance: HEPARIN SODIUM
     Indication: PRODUCT USED FOR UNKNOWN INDICATION
     Dosage: 20 000 IU, DAILY
     Route: 042
  8. MAGNESIUM CHLORIDE ANHYDROUS [Concomitant]
     Active Substance: MAGNESIUM CHLORIDE ANHYDROUS
     Indication: PRODUCT USED FOR UNKNOWN INDICATION
     Dosage: 2G, DAILY
     Route: 065
  9. AMOXICILLIN. [Concomitant]
     Active Substance: AMOXICILLIN
     Indication: STREPTOCOCCAL SEPSIS
     Dosage: 2GM, 6 TIMES DAILY
     Route: 065
  10. POTASSIUM CHLORIDE. [Concomitant]
     Active Substance: POTASSIUM CHLORIDE
     Indication: PRODUCT USED FOR UNKNOWN INDICATION
     Dosage: 2G, DAILY
     Route: 065
  11. SUBUTEX [Suspect]
     Active Substance: BUPRENORPHINE HYDROCHLORIDE
     Dosage: 4 MG, DAILY
     Route: 065
  12. NICOTINE. [Concomitant]
     Active Substance: NICOTINE
     Indication: PRODUCT USED FOR UNKNOWN INDICATION
     Dosage: 3 OR 4 CIGARETTES DAILY
     Route: 065
  13. CERNEVIT [Concomitant]
     Active Substance: VITAMINS
     Indication: PRODUCT USED FOR UNKNOWN INDICATION
     Dosage: 1 DOSAGE FORM DAILY
     Route: 065
  14. SUBUTEX [Suspect]
     Active Substance: BUPRENORPHINE HYDROCHLORIDE
     Indication: PRODUCT USED FOR UNKNOWN INDICATION
     Dosage: 4MG, DAILY
     Route: 042

REACTIONS (20)
  - Skin necrosis [Unknown]
  - Aortic valve incompetence [Unknown]
  - Localised infection [Unknown]
  - Oedema [Unknown]
  - Pneumothorax [Unknown]
  - Drug withdrawal syndrome [Unknown]
  - Intentional product use issue [Unknown]
  - Meningitis bacterial [Recovered/Resolved with Sequelae]
  - Peripheral ischaemia [Unknown]
  - Renal infarct [Unknown]
  - Productive cough [Unknown]
  - Skin ulcer [Unknown]
  - Malnutrition [Unknown]
  - Oesophageal ulcer [Unknown]
  - Red blood cell morphology abnormal [Unknown]
  - Oesophageal stenosis [Unknown]
  - Anaemia [Unknown]
  - Endocarditis bacterial [Recovered/Resolved with Sequelae]
  - Streptococcal sepsis [Unknown]
  - Splenic infarction [Unknown]

NARRATIVE: CASE EVENT DATE: 20160122
